FAERS Safety Report 8273851-3 (Version None)
Quarter: 2012Q2

REPORT INFORMATION
  Report Type: 
  Country: None (occurrence: None)
  Receive Date: 20120411
  Receipt Date: 20120329
  Transmission Date: 20120825
  Serious: Yes (Other)
  Sender: FDA-Public Use
  Company Number: US-SHIONOGI, INC-2012000112

PATIENT

DRUGS (5)
  1. FOCALIN [Concomitant]
     Dosage: 5 MG, UNK
  2. RISPERDAL [Concomitant]
     Dosage: 0.5 MG, UNK
  3. KAPVAY [Suspect]
     Indication: TIC
     Dosage: 0.3 MG, DAILY (0.1MG QAM, 0.2MG QHS)
     Dates: start: 20120220, end: 20120318
  4. KAPVAY [Suspect]
     Indication: MOOD SWINGS
  5. KAPVAY [Suspect]
     Indication: PSYCHOMOTOR HYPERACTIVITY
     Dosage: 0.3 MG DAILY
     Dates: start: 20120220, end: 20120312

REACTIONS (6)
  - ABDOMINAL DISCOMFORT [None]
  - CHEST DISCOMFORT [None]
  - LETHARGY [None]
  - FATIGUE [None]
  - SOMNOLENCE [None]
  - URINARY INCONTINENCE [None]
